FAERS Safety Report 13392616 (Version 1)
Quarter: 2017Q1

REPORT INFORMATION
  Report Type: Spontaneous
  Country: BR (occurrence: BR)
  Receive Date: 20170331
  Receipt Date: 20170331
  Transmission Date: 20170429
  Serious: Yes (Hospitalization)
  Sender: FDA-Public Use
  Company Number: BR-SA-2017SA051063

PATIENT
  Age: 33 Year
  Sex: Female
  Weight: 96 kg

DRUGS (3)
  1. VITAMIN D/CALCIUM [Concomitant]
     Indication: VITAMIN SUPPLEMENTATION
     Route: 048
     Dates: start: 201612
  2. MABTHERA [Concomitant]
     Active Substance: RITUXIMAB
     Indication: AUTOIMMUNE DISORDER
     Route: 065
     Dates: start: 201609
  3. CLEXANE SAFETY LOCK [Suspect]
     Active Substance: ENOXAPARIN SODIUM
     Indication: ANTIPHOSPHOLIPID SYNDROME
     Route: 058
     Dates: start: 2012

REACTIONS (4)
  - Pain [Not Recovered/Not Resolved]
  - Skin lesion [Not Recovered/Not Resolved]
  - Vasculitis [Not Recovered/Not Resolved]
  - Condition aggravated [Not Recovered/Not Resolved]

NARRATIVE: CASE EVENT DATE: 2016
